FAERS Safety Report 24988121 (Version 1)
Quarter: 2025Q1

REPORT INFORMATION
  Report Type: Report from Study
  Country: US (occurrence: US)
  Receive Date: 20250220
  Receipt Date: 20250220
  Transmission Date: 20250408
  Serious: Yes (Hospitalization, Other)
  Sender: ABBVIE
  Company Number: US-ABBVIE-6035608

PATIENT
  Age: 78 Year
  Sex: Female
  Weight: 95 kg

DRUGS (24)
  1. HUMIRA [Suspect]
     Active Substance: ADALIMUMAB
     Indication: Ankylosing spondylitis
     Route: 058
     Dates: start: 20130101
  2. HUMIRA [Suspect]
     Active Substance: ADALIMUMAB
     Route: 058
     Dates: start: 2003
  3. ENTRESTO [Concomitant]
     Active Substance: SACUBITRIL\VALSARTAN
     Indication: Product used for unknown indication
     Dosage: HALF TABLET AM AND PM.
     Dates: start: 20231223
  4. FAMOTIDINE [Concomitant]
     Active Substance: FAMOTIDINE
     Indication: Product used for unknown indication
  5. DEXMETHYLPHENIDATE [Concomitant]
     Active Substance: DEXMETHYLPHENIDATE
     Indication: Product used for unknown indication
     Dates: start: 20210705
  6. LEXAPRO [Concomitant]
     Active Substance: ESCITALOPRAM OXALATE
     Indication: Depression
  7. OXYCONTIN [Concomitant]
     Active Substance: OXYCODONE HYDROCHLORIDE
     Indication: Product used for unknown indication
  8. PROLIA [Concomitant]
     Active Substance: DENOSUMAB
     Indication: Osteoporosis
  9. Tirzep [Concomitant]
     Indication: Product used for unknown indication
     Route: 058
  10. TRAZODONE HCL [Concomitant]
     Active Substance: TRAZODONE HYDROCHLORIDE
     Indication: Product used for unknown indication
  11. PERCOCET [Concomitant]
     Active Substance: ACETAMINOPHEN\OXYCODONE HYDROCHLORIDE
     Indication: Product used for unknown indication
  12. DICLOFENAC [Concomitant]
     Active Substance: DICLOFENAC
     Indication: Product used for unknown indication
  13. IMITREX [Concomitant]
     Active Substance: SUMATRIPTAN SUCCINATE
     Indication: Migraine
  14. LIDOCAINE [Concomitant]
     Active Substance: LIDOCAINE
     Indication: Product used for unknown indication
  15. TRANEXAMIC ACID [Concomitant]
     Active Substance: TRANEXAMIC ACID
     Indication: Product used for unknown indication
  16. POTASSIUM CHLORIDE [Concomitant]
     Active Substance: POTASSIUM CHLORIDE
     Indication: Product used for unknown indication
     Dates: start: 20240820
  17. JARDIANCE [Concomitant]
     Active Substance: EMPAGLIFLOZIN
     Indication: Fluid retention
     Dates: start: 20230925
  18. METHOCARBAMOL [Concomitant]
     Active Substance: METHOCARBAMOL
     Indication: Muscle relaxant therapy
  19. LORATADINE [Concomitant]
     Active Substance: LORATADINE
     Indication: Product used for unknown indication
  20. AZELASTINE [Concomitant]
     Active Substance: AZELASTINE
     Indication: Product used for unknown indication
  21. FLUTICASONE PROPIONATE [Concomitant]
     Active Substance: FLUTICASONE PROPIONATE
     Indication: Product used for unknown indication
     Route: 045
  22. COLACE [Concomitant]
     Active Substance: DOCUSATE SODIUM
     Indication: Constipation
     Dosage: TWO TO THREE TABLET EVENING.
  23. SENNOSIDES [Concomitant]
     Active Substance: SENNOSIDES
     Indication: Constipation
  24. MIRALAX [Concomitant]
     Active Substance: POLYETHYLENE GLYCOL 3350
     Indication: Product used for unknown indication

REACTIONS (23)
  - Femur fracture [Unknown]
  - Device fastener issue [Unknown]
  - Dyspnoea [Unknown]
  - Cataract [Unknown]
  - Road traffic accident [Unknown]
  - Traumatic fracture [Unknown]
  - Contusion [Unknown]
  - Weight decreased [Unknown]
  - Swelling [Not Recovered/Not Resolved]
  - Acute kidney injury [Unknown]
  - Pulmonary embolism [Unknown]
  - Left ventricular end-diastolic pressure increased [Unknown]
  - Oesophagoscopy [Unknown]
  - Fall [Unknown]
  - Arthralgia [Unknown]
  - Platelet aggregation abnormal [Unknown]
  - Knee arthroplasty [Unknown]
  - Knee arthroplasty [Unknown]
  - Spinal implantation [Unknown]
  - Shoulder operation [Unknown]
  - Shoulder operation [Unknown]
  - Muscle rupture [Unknown]
  - Dehydration [Unknown]

NARRATIVE: CASE EVENT DATE: 20050501
